FAERS Safety Report 11105725 (Version 1)
Quarter: 2015Q2

REPORT INFORMATION
  Report Type: Spontaneous
  Country: US (occurrence: None)
  Receive Date: 20150508
  Receipt Date: 20150508
  Transmission Date: 20150821
  Serious: Yes (Hospitalization, Other)
  Sender: FDA-Public Use
  Company Number: 2015EPC00003

PATIENT
  Age: 17 Year
  Sex: Male

DRUGS (2)
  1. AMLODIPINE (AMLODIPINE) TABLET, 5MG [Suspect]
     Active Substance: AMLODIPINE BESYLATE
     Dosage: 100 TO 125 MG, ONCE
  2. HYDROCHLOROTHIAZIDE (HYDROCHLOROTHIAZIDE) [Suspect]
     Active Substance: HYDROCHLOROTHIAZIDE

REACTIONS (5)
  - Lethargy [None]
  - Shock [None]
  - Atrioventricular block complete [None]
  - Atrioventricular block second degree [None]
  - Intentional overdose [None]
